FAERS Safety Report 9224233 (Version 1)
Quarter: 2013Q2

REPORT INFORMATION
  Report Type: Spontaneous
  Country: US (occurrence: None)
  Receive Date: 20130409
  Receipt Date: 20130409
  Transmission Date: 20140414
  Serious: No
  Sender: FDA-Public Use
  Company Number: None

PATIENT
  Sex: Female

DRUGS (1)
  1. QSYMIA [Suspect]
     Dosage: INTIAL 3.75/23 FILLED 10/29/2012,  11.25/ 69  QD PO
     Route: 048
     Dates: start: 20121029

REACTIONS (1)
  - Nephrolithiasis [None]
